FAERS Safety Report 11074351 (Version 2)
Quarter: 2015Q2

REPORT INFORMATION
  Report Type: Spontaneous
  Country: US (occurrence: US)
  Receive Date: 20150428
  Receipt Date: 20150511
  Transmission Date: 20150821
  Serious: Yes (Hospitalization)
  Sender: FDA-Public Use
  Company Number: US-LPDUSPRD-20150240

PATIENT
  Age: 49 Year
  Sex: Male

DRUGS (2)
  1. EPINEPHRINE INJECTION [Suspect]
     Active Substance: EPINEPHRINE
     Dosage: 0.3 MG (1:10000)
     Route: 040
  2. ATROPINE [Concomitant]
     Active Substance: ATROPINE
     Dosage: 0.5 MG EACH, OVER 10 MIN
     Route: 042

REACTIONS (1)
  - Stress cardiomyopathy [Recovered/Resolved]
